FAERS Safety Report 11517382 (Version 1)
Quarter: 2015Q3

REPORT INFORMATION
  Report Type: Spontaneous
  Country: US (occurrence: US)
  Receive Date: 20150917
  Receipt Date: 20150917
  Transmission Date: 20151125
  Serious: No
  Sender: FDA-Public Use
  Company Number: US-GLENMARK PHARMACEUTICALS INC, USA.-2014GMK012732

PATIENT
  Age: 38 Year
  Sex: Female

DRUGS (3)
  1. NORETHINDRONE ACETATE TABLETS [Suspect]
     Active Substance: NORETHINDRONE ACETATE
     Dosage: 5 MG, UNK
     Dates: start: 20141107, end: 2014
  2. LUPRON [Suspect]
     Active Substance: LEUPROLIDE ACETATE
     Indication: ENDOMETRIOSIS
     Dosage: 3.75 MG, EVERY MONTH
     Dates: start: 20141107
  3. LUPRON [Suspect]
     Active Substance: LEUPROLIDE ACETATE
     Dosage: 11.25 UNK, EVERY 3 MONTHS
     Dates: start: 20141208

REACTIONS (6)
  - Confusional state [Unknown]
  - Alopecia [Unknown]
  - Myalgia [Unknown]
  - Dyspnoea [Recovered/Resolved]
  - Night sweats [Unknown]
  - Migraine [Recovered/Resolved]

NARRATIVE: CASE EVENT DATE: 20141107
